FAERS Safety Report 16480526 (Version 1)
Quarter: 2019Q2

REPORT INFORMATION
  Report Type: Spontaneous
  Country: US (occurrence: US)
  Receive Date: 20190626
  Receipt Date: 20190626
  Transmission Date: 20190711
  Serious: No
  Sender: FDA-Public Use
  Company Number: US-SUNOVION-2019SUN002556

PATIENT
  Age: 6 Decade
  Sex: Female

DRUGS (1)
  1. LATUDA [Suspect]
     Active Substance: LURASIDONE HYDROCHLORIDE
     Indication: SCHIZOPHRENIA
     Dosage: 160 MG, QD
     Route: 048

REACTIONS (3)
  - Therapeutic product effect incomplete [Unknown]
  - Psychotic disorder [Unknown]
  - Schizophrenia [Unknown]
